FAERS Safety Report 8355160-7 (Version None)
Quarter: 2012Q2

REPORT INFORMATION
  Report Type: 
  Country: None (occurrence: None)
  Receive Date: 20120511
  Receipt Date: 20120427
  Transmission Date: 20120825
  Serious: Yes (Other)
  Sender: FDA-Public Use
  Company Number: CHPA2012US010076

PATIENT
  Sex: Male

DRUGS (1)
  1. EXCEDRIN EXTRA STRENGTH TABLETS [Suspect]
     Indication: HEADACHE
     Dosage: 2 DF, 2-3 TIMES A WEEK
     Route: 048

REACTIONS (3)
  - HYPERTHYROIDISM [None]
  - BLOOD PRESSURE ABNORMAL [None]
  - HYPOTHYROIDISM [None]
